FAERS Safety Report 9779039 (Version 2)
Quarter: 2014Q1

REPORT INFORMATION
  Report Type: Spontaneous
  Country: US (occurrence: US)
  Receive Date: 20131223
  Receipt Date: 20140320
  Transmission Date: 20141002
  Serious: Yes (Other)
  Sender: FDA-Public Use
  Company Number: US-ENDO PHARMACEUTICALS INC.-OPCR20130345

PATIENT
  Age: 32 Year
  Sex: Male

DRUGS (2)
  1. OPANA ER 10MG [Suspect]
     Indication: NECK PAIN
     Route: 048
     Dates: start: 201110
  2. TYLENOL # 3 [Suspect]
     Indication: DRUG ABUSE
     Dosage: UNK
     Route: 065

REACTIONS (1)
  - Drug dependence [Unknown]
